FAERS Safety Report 20956600 (Version 1)
Quarter: 2022Q2

REPORT INFORMATION
  Report Type: Spontaneous
  Country: AR (occurrence: AR)
  Receive Date: 20220614
  Receipt Date: 20220614
  Transmission Date: 20220721
  Serious: Yes (Other)
  Sender: FDA-Public Use
  Company Number: AR-NOVARTISPH-NVSC2022AR134718

PATIENT
  Sex: Female

DRUGS (2)
  1. CALCIUM [Suspect]
     Active Substance: CALCIUM
     Indication: Parathyroid disorder
     Dosage: 3 DOSAGE FORM, QD (30 EFFERVESCENT TABLETS)
     Route: 065
     Dates: start: 1989
  2. CALCIUM [Suspect]
     Active Substance: CALCIUM
     Dosage: 2 DOSAGE FORM, QD
     Route: 065

REACTIONS (7)
  - Breast cancer [Recovering/Resolving]
  - Neoplasm malignant [Unknown]
  - Nodule [Unknown]
  - Cyst [Unknown]
  - Breast discomfort [Unknown]
  - Product use in unapproved indication [Unknown]
  - Incorrect dose administered [Unknown]

NARRATIVE: CASE EVENT DATE: 20010101
